FAERS Safety Report 4581835-1 (Version None)
Quarter: 2005Q1

REPORT INFORMATION
  Report Type: 
  Country: None (occurrence: None)
  Receive Date: 20050214
  Receipt Date: 20040316
  Transmission Date: 20050727
  Serious: No
  Sender: FDA-Public Use
  Company Number: US-GLAXOSMITHKLINE-A0502974A

PATIENT
  Age: 80 Year
  Sex: Female
  Weight: 58.2 kg

DRUGS (8)
  1. LAMICTAL [Suspect]
     Indication: POST HERPETIC NEURALGIA
     Route: 048
     Dates: start: 20040215, end: 20040309
  2. LAMISIL [Suspect]
     Route: 048
  3. NEURONTIN [Concomitant]
     Indication: POST HERPETIC NEURALGIA
     Dosage: 400MG PER DAY
     Route: 048
     Dates: start: 20000101
  4. ATENOLOL [Concomitant]
     Indication: HYPERTENSION
     Dosage: 100MG PER DAY
     Route: 048
  5. TIAZAC [Concomitant]
     Indication: HYPERTENSION
     Dosage: 120MG PER DAY
     Route: 048
  6. RAMIPRIL [Concomitant]
     Indication: HYPERTENSION
     Dosage: 10MG TWICE PER DAY
     Route: 048
  7. COUMADIN [Concomitant]
     Indication: ATRIAL FLUTTER
     Dosage: 2.5MG PER DAY
     Route: 048
     Dates: start: 20030101
  8. ZOCOR [Concomitant]
     Dosage: 10MG PER DAY
     Route: 048
     Dates: start: 20000101

REACTIONS (4)
  - ANOREXIA [None]
  - ASTHENIA [None]
  - FATIGUE [None]
  - MEDICATION ERROR [None]
